FAERS Safety Report 17521449 (Version 5)
Quarter: 2020Q4

REPORT INFORMATION
  Report Type: Spontaneous
  Country: US (occurrence: US)
  Receive Date: 20200310
  Receipt Date: 20201221
  Transmission Date: 20210113
  Serious: Yes (Other)
  Sender: FDA-Public Use
  Company Number: US-GILEAD-2020-0454073

PATIENT
  Age: 38 Year
  Sex: Male
  Weight: 64.4 kg

DRUGS (20)
  1. COMPLERA [Suspect]
     Active Substance: EMTRICITABINE\RILPIVIRINE HYDROCHLORIDE\TENOFOVIR DISOPROXIL FUMARATE
     Indication: HIV INFECTION
     Dosage: UNK
     Route: 048
     Dates: start: 20111202, end: 20131008
  2. TRUVADA [Suspect]
     Active Substance: EMTRICITABINE\TENOFOVIR DISOPROXIL FUMARATE
     Indication: HIV INFECTION
     Dosage: UNK
     Route: 048
     Dates: start: 20080603, end: 20080702
  3. AMOXICILLIN. [Concomitant]
     Active Substance: AMOXICILLIN
  4. TYLENOL [Concomitant]
     Active Substance: ACETAMINOPHEN
  5. FLAMAX [Concomitant]
  6. XANAX [Concomitant]
     Active Substance: ALPRAZOLAM
  7. ZOLOFT [Concomitant]
     Active Substance: SERTRALINE HYDROCHLORIDE
  8. VIREAD [Suspect]
     Active Substance: TENOFOVIR DISOPROXIL FUMARATE
     Indication: HIV INFECTION
     Dosage: UNK
     Route: 048
     Dates: start: 20080725, end: 20111021
  9. BACTRIM [Concomitant]
     Active Substance: SULFAMETHOXAZOLE\TRIMETHOPRIM
  10. ATIVAN [Concomitant]
     Active Substance: LORAZEPAM
  11. SUDAFED COLD + SINUS [Concomitant]
     Indication: INFLUENZA
     Dosage: UNK
     Route: 048
  12. FLEET LAXATIVE [Concomitant]
  13. IBUPROFEN. [Concomitant]
     Active Substance: IBUPROFEN
  14. VICKS NYQUIL [Concomitant]
     Active Substance: ACETAMINOPHEN\DEXTROMETHORPHAN HYDROBROMIDE\DOXYLAMINE SUCCINATE
  15. VITAMIN D SUPPORT [Concomitant]
     Active Substance: CHOLECALCIFEROL
     Indication: BONE DISORDER
     Dosage: UNK
     Route: 048
     Dates: start: 20100401
  16. VALIUM [Concomitant]
     Active Substance: DIAZEPAM
  17. PAXIL [Concomitant]
     Active Substance: PAROXETINE HYDROCHLORIDE
  18. PROZAC [Concomitant]
     Active Substance: FLUOXETINE HYDROCHLORIDE
  19. CIMETIDINE [Concomitant]
     Active Substance: CIMETIDINE
  20. DICLOFENAC [Concomitant]
     Active Substance: DICLOFENAC

REACTIONS (17)
  - Osteoporosis [Not Recovered/Not Resolved]
  - Dysuria [Unknown]
  - Depression [Not Recovered/Not Resolved]
  - Chronic kidney disease [Unknown]
  - Osteonecrosis [Unknown]
  - Economic problem [Unknown]
  - Anxiety [Not Recovered/Not Resolved]
  - Emotional distress [Not Recovered/Not Resolved]
  - Renal failure [Unknown]
  - Osteopenia [Unknown]
  - Dysstasia [Unknown]
  - Gait disturbance [Unknown]
  - Panic attack [Not Recovered/Not Resolved]
  - Pain [Unknown]
  - Tooth loss [Unknown]
  - Mastication disorder [Unknown]
  - Bone density decreased [Unknown]

NARRATIVE: CASE EVENT DATE: 20081127
